FAERS Safety Report 13981102 (Version 1)
Quarter: 2017Q3

REPORT INFORMATION
  Report Type: Spontaneous
  Country: GB (occurrence: AT)
  Receive Date: 20170918
  Receipt Date: 20170918
  Transmission Date: 20171128
  Serious: Yes (Other)
  Sender: FDA-Public Use
  Company Number: AT-CONCORDIA PHARMACEUTICALS INC.-GSH201709-005116

PATIENT
  Age: 51 Year
  Sex: Female

DRUGS (27)
  1. SIMVASTATIN. [Suspect]
     Active Substance: SIMVASTATIN
     Dates: start: 19991013
  2. TACROLIMUS. [Suspect]
     Active Substance: TACROLIMUS
     Dates: start: 19991119
  3. TACROLIMUS. [Suspect]
     Active Substance: TACROLIMUS
     Dates: start: 199912, end: 200003
  4. TACROLIMUS. [Suspect]
     Active Substance: TACROLIMUS
     Dosage: 3 TO 4 MG/DAY
     Dates: start: 199811, end: 199905
  5. AZATHIOPRINE. [Suspect]
     Active Substance: AZATHIOPRINE
     Indication: IMMUNOSUPPRESSION
  6. FLUVASTATIN [Concomitant]
     Active Substance: FLUVASTATIN SODIUM
     Indication: HYPERLIPIDAEMIA
     Dates: start: 199912, end: 200003
  7. FLUVASTATIN [Concomitant]
     Active Substance: FLUVASTATIN SODIUM
     Dates: start: 200101
  8. SIMVASTATIN. [Suspect]
     Active Substance: SIMVASTATIN
     Indication: HYPERLIPIDAEMIA
     Dates: start: 199907, end: 199909
  9. TACROLIMUS. [Suspect]
     Active Substance: TACROLIMUS
     Indication: IMMUNOSUPPRESSION
     Dates: start: 19981111
  10. TACROLIMUS. [Suspect]
     Active Substance: TACROLIMUS
     Dates: start: 199907, end: 199909
  11. FELODIPINE. [Concomitant]
     Active Substance: FELODIPINE
  12. FUSIDIC ACID [Suspect]
     Active Substance: FUSIDIC ACID
     Indication: OSTEOMYELITIS
     Dates: start: 19991119
  13. FUSIDIC ACID [Suspect]
     Active Substance: FUSIDIC ACID
     Indication: SOFT TISSUE INFECTION
     Dates: start: 19991013
  14. SIMVASTATIN. [Suspect]
     Active Substance: SIMVASTATIN
     Dates: start: 19991119
  15. TACROLIMUS. [Suspect]
     Active Substance: TACROLIMUS
     Dosage: 3 TO 4 MG/DAY
     Dates: start: 199811, end: 199812
  16. TACROLIMUS. [Suspect]
     Active Substance: TACROLIMUS
     Dates: start: 19991013
  17. TACROLIMUS. [Suspect]
     Active Substance: TACROLIMUS
     Dates: start: 200101
  18. CITALOPRAM [Concomitant]
     Active Substance: CITALOPRAM HYDROBROMIDE
  19. TACROLIMUS. [Suspect]
     Active Substance: TACROLIMUS
     Dates: start: 200003, end: 200012
  20. SIMVASTATIN. [Suspect]
     Active Substance: SIMVASTATIN
     Dates: start: 19991004
  21. TACROLIMUS. [Suspect]
     Active Substance: TACROLIMUS
     Dosage: 3 TO 4 MG/DAY
     Dates: start: 199906
  22. TACROLIMUS. [Suspect]
     Active Substance: TACROLIMUS
     Dates: start: 19991004
  23. PREDNISOLONE. [Suspect]
     Active Substance: PREDNISOLONE
     Indication: IMMUNOSUPPRESSION
  24. FUSIDIC ACID [Suspect]
     Active Substance: FUSIDIC ACID
     Dates: start: 200101
  25. FLUVASTATIN [Concomitant]
     Active Substance: FLUVASTATIN SODIUM
     Dates: start: 200003, end: 200012
  26. ASPIRIN. [Concomitant]
     Active Substance: ASPIRIN
  27. INSULIN [Concomitant]
     Active Substance: INSULIN NOS
     Dosage: INTENSIFIED INSULIN THERAPY REGIMEN

REACTIONS (3)
  - Drug interaction [Unknown]
  - Rhabdomyolysis [Unknown]
  - Renal transplant failure [Recovering/Resolving]
